FAERS Safety Report 5645873-X (Version None)
Quarter: 2008Q1

REPORT INFORMATION
  Report Type: 
  Country: None (occurrence: None)
  Receive Date: 20080229
  Receipt Date: 20080219
  Transmission Date: 20080703
  Serious: No
  Sender: FDA-Public Use
  Company Number: AU-PFIZER INC-2008012592

PATIENT
  Sex: Female
  Weight: 100 kg

DRUGS (5)
  1. LYRICA [Suspect]
     Indication: ANALGESIC THERAPY
     Route: 048
  2. LYRICA [Suspect]
     Indication: FIBROMYALGIA
  3. AVAPRO [Concomitant]
     Route: 048
  4. NORVASC [Concomitant]
     Route: 048
  5. NOTEN [Concomitant]
     Route: 048

REACTIONS (2)
  - CONTUSION [None]
  - THROMBOPHLEBITIS [None]
